FAERS Safety Report 7128188-2 (Version None)
Quarter: 2010Q4

REPORT INFORMATION
  Report Type: 
  Country: None (occurrence: None)
  Receive Date: 20101112
  Receipt Date: 20101101
  Transmission Date: 20110411
  Serious: Yes (Other)
  Sender: FDA-Public Use
  Company Number: AXC-2010-000290

PATIENT
  Age: 17 Year
  Sex: Male

DRUGS (2)
  1. CARAFATE [Suspect]
     Indication: GASTRIC ULCER
     Dosage: 1 G, QID, ORAL
     Route: 048
     Dates: start: 20100701, end: 20101001
  2. NEXIUM [Concomitant]

REACTIONS (2)
  - DIZZINESS [None]
  - SYNCOPE [None]
